FAERS Safety Report 9435178 (Version 2)
Quarter: 2014Q3

REPORT INFORMATION
  Report Type: Spontaneous
  Country: US (occurrence: US)
  Receive Date: 20130801
  Receipt Date: 20140730
  Transmission Date: 20150326
  Serious: Yes (Hospitalization, Other)
  Sender: FDA-Public Use
  Company Number: US-009507513-1308USA000210

PATIENT
  Sex: Female

DRUGS (1)
  1. NUVARING [Suspect]
     Active Substance: ETHINYL ESTRADIOL\ETONOGESTREL
     Indication: CONTRACEPTION
     Dosage: 0.120MG/ 0.015MG EVERY 28 DAYS
     Route: 067
     Dates: start: 20100729, end: 20100825

REACTIONS (10)
  - Tooth extraction [Unknown]
  - Dermoid cyst [Unknown]
  - Arthroscopy [Unknown]
  - Depression [Not Recovered/Not Resolved]
  - Umbilical hernia repair [Unknown]
  - Hepatic cyst [Unknown]
  - Thrombosis [Unknown]
  - Embolism venous [Unknown]
  - Salpingo-oophorectomy unilateral [Unknown]
  - Pulmonary embolism [Unknown]

NARRATIVE: CASE EVENT DATE: 201008
